FAERS Safety Report 7390365-3 (Version None)
Quarter: 2011Q2

REPORT INFORMATION
  Report Type: 
  Country: None (occurrence: None)
  Receive Date: 20110401
  Receipt Date: 20110319
  Transmission Date: 20111010
  Serious: Yes (Hospitalization, Disabling)
  Sender: FDA-Public Use
  Company Number: CA-JNJFOC-20110308951

PATIENT
  Sex: Female
  Weight: 72 kg

DRUGS (4)
  1. REMICADE [Suspect]
     Indication: CROHN'S DISEASE
     Route: 042
  2. REMICADE [Suspect]
     Route: 042
  3. REMICADE [Suspect]
     Route: 042
  4. ADVIL COLD AND SINUS [Concomitant]
     Route: 048

REACTIONS (12)
  - SWELLING FACE [None]
  - OROPHARYNGEAL PAIN [None]
  - NASAL CONGESTION [None]
  - HOT FLUSH [None]
  - DIARRHOEA [None]
  - OEDEMA PERIPHERAL [None]
  - RHINORRHOEA [None]
  - PRODUCTIVE COUGH [None]
  - FACIAL PAIN [None]
  - DYSPNOEA [None]
  - INFUSION RELATED REACTION [None]
  - LETHARGY [None]
